FAERS Safety Report 7474360-1 (Version None)
Quarter: 2011Q2

REPORT INFORMATION
  Report Type: 
  Country: None (occurrence: None)
  Receive Date: 20110511
  Receipt Date: 20110308
  Transmission Date: 20111010
  Serious: No
  Sender: FDA-Public Use
  Company Number: US-AMGEN-TCS431553

PATIENT
  Age: 60 Year
  Sex: Female

DRUGS (1)
  1. ENBREL [Suspect]
     Indication: RHEUMATOID ARTHRITIS
     Dosage: 50 MG, QWK
     Route: 058
     Dates: start: 20100711

REACTIONS (9)
  - PRURITUS [None]
  - ASTHENIA [None]
  - ARTHRALGIA [None]
  - RHEUMATOID ARTHRITIS [None]
  - PAIN IN EXTREMITY [None]
  - INJECTION SITE PAIN [None]
  - MUSCULAR WEAKNESS [None]
  - ERYTHEMA [None]
  - ANIMAL BITE [None]
